FAERS Safety Report 7053276-9 (Version None)
Quarter: 2010Q4

REPORT INFORMATION
  Report Type: 
  Country: None (occurrence: None)
  Receive Date: 20101020
  Receipt Date: 20101006
  Transmission Date: 20110411
  Serious: Yes (Hospitalization)
  Sender: FDA-Public Use
  Company Number: PHHY2010US67709

PATIENT
  Sex: Female

DRUGS (1)
  1. RECLAST [Suspect]
     Dosage: 5 MG ONCE PER YEAR

REACTIONS (3)
  - ASTHENIA [None]
  - DIALYSIS [None]
  - SKIN DISCOLOURATION [None]
